FAERS Safety Report 18778616 (Version 5)
Quarter: 2021Q2

REPORT INFORMATION
  Report Type: Spontaneous
  Country: US (occurrence: US)
  Receive Date: 20210124
  Receipt Date: 20210427
  Transmission Date: 20210717
  Serious: Yes (Other)
  Sender: FDA-Public Use
  Company Number: US-GLAXOSMITHKLINE-US2021AMR010838

PATIENT
  Age: 70 Year
  Sex: Female

DRUGS (3)
  1. ZEJULA [Suspect]
     Active Substance: NIRAPARIB
     Indication: OVARIAN CANCER
     Dosage: 200 MG, QD
  2. ZEJULA [Suspect]
     Active Substance: NIRAPARIB
     Dosage: 2 DF (CAPSULES) (EVERY OTHER DAY)
  3. ZEJULA [Suspect]
     Active Substance: NIRAPARIB
     Dosage: 200 MG, QD

REACTIONS (13)
  - Fatigue [Unknown]
  - Sinusitis [Unknown]
  - COVID-19 [Recovered/Resolved]
  - Arrhythmia [Unknown]
  - Ventricular extrasystoles [Unknown]
  - Constipation [Unknown]
  - Ill-defined disorder [Unknown]
  - Diarrhoea [Not Recovered/Not Resolved]
  - White blood cell count decreased [Recovered/Resolved]
  - Inappropriate schedule of product administration [Unknown]
  - Nausea [Unknown]
  - Decreased appetite [Unknown]
  - Pancreatic neoplasm [Unknown]

NARRATIVE: CASE EVENT DATE: 202011
